FAERS Safety Report 22596776 (Version 1)
Quarter: 2023Q2

REPORT INFORMATION
  Report Type: Spontaneous
  Country: IT (occurrence: IT)
  Receive Date: 20230613
  Receipt Date: 20230613
  Transmission Date: 20230722
  Serious: Yes (Hospitalization)
  Sender: FDA-Public Use
  Company Number: None

PATIENT
  Age: 46 Year
  Sex: Male

DRUGS (1)
  1. ACYCLOVIR [Suspect]
     Active Substance: ACYCLOVIR
     Indication: Oral herpes
     Dosage: FREQUENCY OF ADMINISTRATION: TOTAL. ROUTE OF ADMINISTRATION: EXTERNAL TOPICAL
     Route: 061

REACTIONS (3)
  - Oropharyngeal pain [Recovering/Resolving]
  - Dermatitis allergic [Recovering/Resolving]
  - Pruritus [Recovering/Resolving]

NARRATIVE: CASE EVENT DATE: 20230529
